FAERS Safety Report 7327995-0 (Version None)
Quarter: 2011Q1

REPORT INFORMATION
  Report Type: 
  Country: None (occurrence: None)
  Receive Date: 20110225
  Receipt Date: 20110225
  Transmission Date: 20110831
  Serious: Yes (Other)
  Sender: FDA-Public Use
  Company Number: None

PATIENT
  Age: 81 Year
  Sex: Female
  Weight: 73.9363 kg

DRUGS (1)
  1. CEFTRIAXONE [Suspect]
     Indication: CELLULITIS
     Dosage: 1GM QD IV
     Route: 042
     Dates: start: 20110216, end: 20110218

REACTIONS (1)
  - RASH [None]
